FAERS Safety Report 4694428-2 (Version None)
Quarter: 2005Q2

REPORT INFORMATION
  Report Type: 
  Country: None (occurrence: None)
  Receive Date: 20050620
  Receipt Date: 20050606
  Transmission Date: 20051028
  Serious: Yes (Death, Other)
  Sender: FDA-Public Use
  Company Number: JP-JNJFOC-20040802349

PATIENT
  Age: 66 Year
  Sex: Female

DRUGS (15)
  1. LEVOFLOXACIN [Suspect]
     Indication: PNEUMONIA
     Route: 042
     Dates: start: 20040726, end: 20040730
  2. FRAXIPARIN [Concomitant]
     Indication: THROMBOSIS PROPHYLAXIS
     Route: 058
  3. PANTOPRAZOLE SODIUM [Concomitant]
     Route: 042
     Dates: start: 20040718, end: 20040730
  4. TORSEMIDE [Concomitant]
     Indication: RENAL FAILURE
     Route: 042
     Dates: start: 20040718, end: 20040908
  5. METOCLOPRAMIDE HYDROCHLORIDE [Concomitant]
     Route: 042
     Dates: start: 20040718, end: 20040730
  6. PROSTIGMINE [Concomitant]
     Route: 042
     Dates: start: 20040718, end: 20040730
  7. NOREPINEPHRINE BITARTRATE [Concomitant]
     Route: 042
     Dates: start: 20040718, end: 20040908
  8. ACTRAPID [Concomitant]
     Route: 042
     Dates: start: 20040718, end: 20040908
  9. BELOC [Concomitant]
     Indication: TACHYCARDIA
     Route: 042
  10. BASOCEF [Concomitant]
     Indication: PNEUMONIA
     Route: 042
     Dates: start: 20040718, end: 20040723
  11. CLONT [Concomitant]
     Indication: PNEUMONIA
     Route: 042
     Dates: start: 20040718, end: 20040723
  12. FORTUM [Concomitant]
     Route: 042
     Dates: start: 20040731, end: 20040907
  13. FORTUM [Concomitant]
     Indication: PNEUMONIA
     Route: 042
     Dates: start: 20040731, end: 20040907
  14. GENTAMICIN [Concomitant]
     Indication: PNEUMONIA
     Route: 042
     Dates: start: 20040904, end: 20040907
  15. KLC [Concomitant]
     Route: 042
     Dates: start: 20040718, end: 20040728

REACTIONS (3)
  - JAUNDICE [None]
  - MULTI-ORGAN FAILURE [None]
  - SEPTIC SHOCK [None]
